FAERS Safety Report 8398521-2 (Version None)
Quarter: 2012Q2

REPORT INFORMATION
  Report Type: 
  Country: None (occurrence: None)
  Receive Date: 20120531
  Receipt Date: 20120521
  Transmission Date: 20120825
  Serious: No
  Sender: FDA-Public Use
  Company Number: US-B.I. PHARMACEUTICALS,INC./RIDGEFIELD-2012-BP-11322BP

PATIENT
  Sex: Male

DRUGS (4)
  1. PREMARIN [Concomitant]
     Indication: SUPPLEMENTATION THERAPY
     Dosage: 0.625 MG
     Route: 048
     Dates: start: 19910101
  2. LEVOTHYROXINE SODIUM [Concomitant]
     Indication: THYROID DISORDER
     Dosage: 75 MCG
     Route: 048
     Dates: start: 20100101
  3. PLAQUENIL [Concomitant]
     Indication: AUTOIMMUNE DISORDER
     Dosage: 200 MG
     Route: 048
     Dates: start: 20030101
  4. ZANTAC 150 [Suspect]
     Indication: ABDOMINAL PAIN UPPER
     Dosage: 150 MG
     Route: 048
     Dates: start: 20120507, end: 20120507

REACTIONS (1)
  - CONDITION AGGRAVATED [None]
